FAERS Safety Report 22856635 (Version 4)
Quarter: 2023Q4

REPORT INFORMATION
  Report Type: Spontaneous
  Country: US (occurrence: US)
  Receive Date: 20230823
  Receipt Date: 20231122
  Transmission Date: 20240109
  Serious: Yes (Other)
  Sender: FDA-Public Use
  Company Number: US-JNJFOC-20230826934

PATIENT
  Age: 33 Year
  Sex: Male
  Weight: 76.7 kg

DRUGS (4)
  1. STELARA [Suspect]
     Active Substance: USTEKINUMAB
     Indication: Inflammatory bowel disease
     Route: 040
     Dates: start: 20230804, end: 20230804
  2. STELARA [Suspect]
     Active Substance: USTEKINUMAB
     Indication: Crohn^s disease
  3. ENTOCORT [Concomitant]
     Active Substance: BUDESONIDE
     Indication: Perirectal abscess
     Route: 048
     Dates: start: 20230712
  4. MORNIFLUMATE [Concomitant]
     Active Substance: MORNIFLUMATE
     Indication: Urinary retention
     Route: 048
     Dates: start: 20230707

REACTIONS (2)
  - Infusion related reaction [Recovered/Resolved]
  - Hypersensitivity [Recovered/Resolved]

NARRATIVE: CASE EVENT DATE: 20230804
